FAERS Safety Report 15695259 (Version 1)
Quarter: 2018Q4

REPORT INFORMATION
  Report Type: Spontaneous
  Country: US (occurrence: US)
  Receive Date: 20181206
  Receipt Date: 20181206
  Transmission Date: 20190205
  Serious: Yes (Death, Other)
  Sender: FDA-Public Use
  Company Number: US-TEVA-2018-US-983307

PATIENT
  Age: 2 Year
  Sex: Male

DRUGS (5)
  1. AZTREONAM. [Suspect]
     Active Substance: AZTREONAM
     Indication: PSEUDOMONAS INFECTION
     Route: 065
  2. COLISTIN [Suspect]
     Active Substance: COLISTIN
     Indication: PSEUDOMONAS INFECTION
     Route: 065
  3. MEROPENEM. [Suspect]
     Active Substance: MEROPENEM
     Indication: PSEUDOMONAS INFECTION
     Route: 065
  4. TOBRAMYCIN. [Suspect]
     Active Substance: TOBRAMYCIN
     Indication: PSEUDOMONAS INFECTION
     Route: 065
  5. POLYMIXIN-B [Suspect]
     Active Substance: POLYMYXIN B
     Indication: PSEUDOMONAS INFECTION
     Route: 065

REACTIONS (1)
  - Pathogen resistance [Fatal]
